FAERS Safety Report 22805211 (Version 5)
Quarter: 2023Q4

REPORT INFORMATION
  Report Type: Report from Study
  Country: JP (occurrence: JP)
  Receive Date: 20230809
  Receipt Date: 20231003
  Transmission Date: 20240109
  Serious: Yes (Death, Hospitalization)
  Sender: FDA-Public Use
  Company Number: JP-Eisai-202302037_ABBAsc_C_1

PATIENT
  Age: 76 Year
  Sex: Male
  Weight: 53 kg

DRUGS (3)
  1. LECANEMAB [Suspect]
     Active Substance: LECANEMAB
     Indication: Dementia Alzheimer^s type
     Route: 042
     Dates: start: 20210105, end: 20220614
  2. LECANEMAB [Suspect]
     Active Substance: LECANEMAB
     Route: 058
     Dates: start: 20220701, end: 20230414
  3. LECANEMAB [Suspect]
     Active Substance: LECANEMAB
     Dosage: AI
     Route: 058
     Dates: start: 20230421, end: 20230526

REACTIONS (2)
  - Interstitial lung disease [Fatal]
  - Hyponatraemia [Recovering/Resolving]

NARRATIVE: CASE EVENT DATE: 20230419
